FAERS Safety Report 9671447 (Version 2)
Quarter: 2014Q1

REPORT INFORMATION
  Report Type: Spontaneous
  Country: US (occurrence: US)
  Receive Date: 20131106
  Receipt Date: 20140102
  Transmission Date: 20141002
  Serious: Yes (Other)
  Sender: FDA-Public Use
  Company Number: US-PFIZER INC-2013312818

PATIENT
  Age: 75 Year
  Sex: Male

DRUGS (2)
  1. INLYTA [Suspect]
     Indication: RENAL CANCER
     Dosage: 5 MG, 2X/DAY
     Route: 048
     Dates: start: 20130920
  2. INLYTA [Suspect]
     Dosage: 1 MG, UNK
     Dates: start: 20131101

REACTIONS (7)
  - Pneumonia [Unknown]
  - Fatigue [Unknown]
  - Dysphonia [Unknown]
  - Weight decreased [Unknown]
  - Frequent bowel movements [Unknown]
  - Musculoskeletal pain [Unknown]
  - Pain [Unknown]
